FAERS Safety Report 6507963-9 (Version None)
Quarter: 2009Q4

REPORT INFORMATION
  Report Type: 
  Country: None (occurrence: None)
  Receive Date: 20091221
  Receipt Date: 20091216
  Transmission Date: 20100525
  Serious: Yes (Hospitalization)
  Sender: FDA-Public Use
  Company Number: B0617678A

PATIENT
  Sex: Female

DRUGS (5)
  1. RANIDIL [Suspect]
     Indication: PREMEDICATION
     Dosage: 50MG PER DAY
     Route: 042
     Dates: start: 20091014, end: 20091014
  2. OXALIPLATIN [Concomitant]
  3. XELODA [Concomitant]
     Dosage: 3G PER DAY
     Route: 048
  4. ZOFRAN [Concomitant]
     Dosage: 8MG PER DAY
  5. SOLDESAM [Concomitant]

REACTIONS (3)
  - CYANOSIS [None]
  - DYSPNOEA [None]
  - ERYTHEMA [None]
